FAERS Safety Report 23552622 (Version 2)
Quarter: 2024Q1

REPORT INFORMATION
  Report Type: Spontaneous
  Country: US (occurrence: US)
  Receive Date: 20240222
  Receipt Date: 20240307
  Transmission Date: 20240409
  Serious: Yes (Other)
  Sender: FDA-Public Use
  Company Number: US-TEVA-VS-3158666

PATIENT
  Age: 61 Year
  Sex: Male

DRUGS (13)
  1. ACYCLOVIR [Suspect]
     Active Substance: ACYCLOVIR
     Indication: Antiviral prophylaxis
     Route: 065
     Dates: start: 202105
  2. DOXORUBICIN [Suspect]
     Active Substance: DOXORUBICIN
     Indication: Synovial sarcoma
     Dosage: RECEIVED TWO ADDITIONAL CYCLES; UNDER AIM CHEMOTHERAPY, DOSE UNKNOWN
     Route: 065
  3. DOXORUBICIN [Suspect]
     Active Substance: DOXORUBICIN
     Indication: Synovial sarcoma
     Dosage: RECEIVED UNDER AIM CHEMOTHERAPY
     Route: 065
     Dates: start: 2018
  4. FLUDARABINE [Suspect]
     Active Substance: FLUDARABINE PHOSPHATE
     Indication: Synovial sarcoma
     Route: 065
     Dates: start: 202105
  5. PEMBROLIZUMAB [Suspect]
     Active Substance: PEMBROLIZUMAB
     Indication: Synovial sarcoma
     Route: 065
  6. TRABECTEDIN [Suspect]
     Active Substance: TRABECTEDIN
     Indication: Synovial sarcoma
     Dosage: RECEIVED TWO CYCLES
     Route: 065
     Dates: start: 202112, end: 202202
  7. PAZOPANIB [Suspect]
     Active Substance: PAZOPANIB
     Indication: Synovial sarcoma
     Route: 065
  8. SALINE [Concomitant]
     Active Substance: SODIUM CHLORIDE
     Indication: Hypotension
     Route: 040
  9. IFOSFAMIDE [Suspect]
     Active Substance: IFOSFAMIDE
     Indication: Synovial sarcoma
     Dosage: RECEIVED UNDER AIM CHEMOTHERAPY
     Route: 065
     Dates: start: 2018
  10. IFOSFAMIDE [Suspect]
     Active Substance: IFOSFAMIDE
     Indication: Synovial sarcoma
     Dosage: RECEIVED TWO ADDITIONAL CYCLES; UNDER AIM CHEMOTHERAPY, DOSE UNKNOWN
     Route: 065
  11. TOCILIZUMAB [Concomitant]
     Active Substance: TOCILIZUMAB
     Indication: Cytokine release syndrome
     Route: 065
  12. CYCLOPHOSPHAMIDE [Suspect]
     Active Substance: CYCLOPHOSPHAMIDE
     Indication: Synovial sarcoma
     Route: 065
     Dates: start: 202105
  13. DEXAMETHASONE [Concomitant]
     Active Substance: DEXAMETHASONE
     Indication: Cytokine release syndrome
     Route: 065

REACTIONS (8)
  - Epstein-Barr virus associated lymphoproliferative disorder [Recovered/Resolved]
  - Immune effector cell-associated neurotoxicity syndrome [Recovered/Resolved]
  - Drug ineffective [Unknown]
  - Neutropenia [Unknown]
  - Acute myocardial infarction [Recovering/Resolving]
  - Cytokine release syndrome [Recovered/Resolved]
  - Cytomegalovirus infection reactivation [Recovered/Resolved]
  - Rhabdomyolysis [Recovering/Resolving]

NARRATIVE: CASE EVENT DATE: 20210101
